FAERS Safety Report 6897203-3 (Version None)
Quarter: 2010Q3

REPORT INFORMATION
  Report Type: 
  Country: None (occurrence: None)
  Receive Date: 20100802
  Receipt Date: 20070430
  Transmission Date: 20110219
  Serious: No
  Sender: FDA-Public Use
  Company Number: US-PFIZER INC-2007020391

PATIENT
  Age: 42 Year
  Sex: Female
  Weight: 65.8 kg

DRUGS (2)
  1. LYRICA [Suspect]
     Indication: PAIN IN EXTREMITY
     Route: 048
  2. BACLOFEN [Concomitant]

REACTIONS (2)
  - CIRCUMORAL OEDEMA [None]
  - FACE OEDEMA [None]
